FAERS Safety Report 9785036 (Version 4)
Quarter: 2014Q2

REPORT INFORMATION
  Report Type: Spontaneous
  Country: JP (occurrence: JP)
  Receive Date: 20131227
  Receipt Date: 20140401
  Transmission Date: 20141212
  Serious: Yes (Hospitalization, Other)
  Sender: FDA-Public Use
  Company Number: JP-ROCHE-1277199

PATIENT
  Age: 4 Year
  Sex: Male
  Weight: 16 kg

DRUGS (6)
  1. CELLCEPT [Suspect]
     Indication: NEPHROTIC SYNDROME
     Dosage: DOSAGE IS UNCERTAIN.
     Route: 048
     Dates: start: 20101112
  2. RITUXAN [Suspect]
     Indication: NEPHROTIC SYNDROME
     Dosage: DAILY
     Route: 041
     Dates: start: 20100914, end: 20100914
  3. NEORAL [Suspect]
     Indication: PRODUCT USED FOR UNKNOWN INDICATION
     Dosage: DAILY
     Route: 048
  4. PREDNISOLONE [Suspect]
     Indication: PRODUCT USED FOR UNKNOWN INDICATION
     Dosage: DOSAGE IS UNCERTAIN.
     Route: 065
     Dates: start: 20110127
  5. ACYCLOVIR [Suspect]
     Indication: ORAL HERPES
     Route: 041
     Dates: start: 20110124, end: 20110126
  6. ALFAROL [Concomitant]
     Indication: OSTEOPOROSIS
     Dosage: DAILY
     Route: 048

REACTIONS (3)
  - Oral herpes [Recovered/Resolved]
  - Leukopenia [Unknown]
  - Nephrotic syndrome [Unknown]
